FAERS Safety Report 5390139-9 (Version None)
Quarter: 2007Q3

REPORT INFORMATION
  Report Type: 
  Country: None (occurrence: None)
  Receive Date: 20070716
  Receipt Date: 20070716
  Transmission Date: 20080115
  Serious: Yes (Life-Threatening, Other)
  Sender: FDA-Public Use
  Company Number: None

PATIENT
  Sex: Male
  Weight: 88.4514 kg

DRUGS (2)
  1. AMLODIPINE [Suspect]
     Indication: BLOOD CHOLESTEROL
     Dosage: TABLET DAILY INTRACORONA
     Route: 022
     Dates: start: 20070613, end: 20070715
  2. AMLODIPINE [Suspect]
     Indication: HYPERTENSION
     Dosage: TABLET DAILY INTRACORONA
     Route: 022
     Dates: start: 20070613, end: 20070715

REACTIONS (3)
  - INFLAMMATION [None]
  - JOINT SWELLING [None]
  - OEDEMA PERIPHERAL [None]
